FAERS Safety Report 5374724-6 (Version None)
Quarter: 2007Q2

REPORT INFORMATION
  Report Type: 
  Country: None (occurrence: None)
  Receive Date: 20070629
  Receipt Date: 20070622
  Transmission Date: 20071010
  Serious: Yes (Other)
  Sender: FDA-Public Use
  Company Number: JP-BRISTOL-MYERS SQUIBB COMPANY-13828637

PATIENT
  Age: 2 Year
  Sex: Male

DRUGS (6)
  1. ENDOXAN [Suspect]
     Indication: EPENDYMOMA
     Dates: start: 20070221
  2. ETOPOSIDE [Suspect]
     Indication: EPENDYMOMA
     Dates: start: 20070221
  3. VINCRISTINE SULFATE [Suspect]
     Indication: EPENDYMOMA
     Dates: start: 20070220
  4. ITRACONAZOLE [Suspect]
     Indication: CANDIDA SEPSIS
     Dates: start: 20070210, end: 20070301
  5. CISPLATIN [Concomitant]
     Dates: start: 20070220
  6. MICAFUNGIN SODIUM [Concomitant]

REACTIONS (19)
  - AGRANULOCYTOSIS [None]
  - ALTERED STATE OF CONSCIOUSNESS [None]
  - BONE MARROW FAILURE [None]
  - CANDIDIASIS [None]
  - CENTRAL LINE INFECTION [None]
  - CONSTIPATION [None]
  - ELECTROLYTE IMBALANCE [None]
  - FEBRILE NEUTROPENIA [None]
  - HAEMOGLOBIN DECREASED [None]
  - HYDROCEPHALUS [None]
  - HYPONATRAEMIA [None]
  - INAPPROPRIATE ANTIDIURETIC HORMONE SECRETION [None]
  - INFLAMMATION [None]
  - INTESTINAL OBSTRUCTION [None]
  - NEUROLOGICAL SYMPTOM [None]
  - OEDEMA [None]
  - PLATELET COUNT DECREASED [None]
  - URINE OUTPUT DECREASED [None]
  - VOMITING [None]
